FAERS Safety Report 5485652-X (Version None)
Quarter: 2007Q4

REPORT INFORMATION
  Report Type: 
  Country: None (occurrence: None)
  Receive Date: 20071011
  Receipt Date: 20070927
  Transmission Date: 20080405
  Serious: Yes (Hospitalization)
  Sender: FDA-Public Use
  Company Number: GXKR2007CH08504

PATIENT
  Age: 59 Year
  Sex: Female

DRUGS (3)
  1. AMOXICILLIN + CLAVULANATE POTASSIUM [Suspect]
     Indication: ACUTE SINUSITIS
     Dosage: 1 G, ORAL
     Route: 048
     Dates: start: 20070804, end: 20070806
  2. AUGMENTIN '125' [Suspect]
     Indication: ACUTE SINUSITIS
     Dosage: 2 DF, ORAL
     Route: 048
     Dates: start: 20070803, end: 20070804
  3. SINUPRET (ASCORBIC ACID, GENTIAN, GENTIANA LUTEA ROOT, PIMULA FLOWERS, [Concomitant]

REACTIONS (2)
  - PYREXIA [None]
  - RENAL FAILURE ACUTE [None]
